FAERS Safety Report 5732021-0 (Version None)
Quarter: 2008Q2

REPORT INFORMATION
  Report Type: 
  Country: None (occurrence: None)
  Receive Date: 20080506
  Receipt Date: 20080408
  Transmission Date: 20081010
  Serious: Yes (Hospitalization)
  Sender: FDA-Public Use
  Company Number: HR-DEXPHARM-20080317

PATIENT
  Age: 53 Year
  Sex: Female

DRUGS (2)
  1. DICLOFENAC [Suspect]
     Indication: ARTHROPATHY
  2. DICLOFENAC [Suspect]
     Indication: MYALGIA

REACTIONS (6)
  - GENERALISED OEDEMA [None]
  - GLOMERULONEPHRITIS MINIMAL LESION [None]
  - NEPHROTIC SYNDROME [None]
  - PALLOR [None]
  - RENAL FAILURE ACUTE [None]
  - RENAL TUBULAR NECROSIS [None]
